FAERS Safety Report 25797936 (Version 1)
Quarter: 2025Q3

REPORT INFORMATION
  Report Type: Spontaneous
  Country: US (occurrence: None)
  Receive Date: 20250912
  Receipt Date: 20250912
  Transmission Date: 20251020
  Serious: Yes (Death)
  Sender: FDA-CTU
  Company Number: None

PATIENT
  Age: 79 Year
  Sex: Male
  Weight: 77.3 kg

DRUGS (1)
  1. ELIQUIS [Suspect]
     Active Substance: APIXABAN
     Dates: start: 20231204, end: 20250717

REACTIONS (3)
  - Haemorrhagic stroke [None]
  - Dysarthria [None]
  - Therapy change [None]

NARRATIVE: CASE EVENT DATE: 20250717
